FAERS Safety Report 8987351 (Version 2)
Quarter: 2013Q1

REPORT INFORMATION
  Report Type: Report from Study
  Country: DE (occurrence: DE)
  Receive Date: 20121226
  Receipt Date: 20130109
  Transmission Date: 20140127
  Serious: Yes (Death, Hospitalization)
  Sender: FDA-Public Use
  Company Number: DE-ROCHE-1144371

PATIENT
  Age: 56 Year
  Sex: Male
  Weight: 100 kg

DRUGS (8)
  1. BEVACIZUMAB [Suspect]
     Indication: COLON CANCER
     Dosage: LAST DOSE PRIOR TO SAE:05/SEP/2012
     Route: 042
     Dates: start: 20120822, end: 20121008
  2. OXALIPLATIN [Suspect]
     Indication: COLON CANCER
     Dosage: LAST DOSE PRIOR TO SAE:05/SEP/2012
     Route: 042
     Dates: start: 20120822, end: 20121008
  3. FOLINIC ACID [Suspect]
     Indication: COLON CANCER
     Dosage: LAST DOSE PRIOR TO SAE:05/SEP/2012
     Route: 042
     Dates: start: 20120822, end: 20121008
  4. FLUOROURACIL [Suspect]
     Indication: COLON CANCER
     Dosage: LAST DOSE PRIOR TO SAE:05/SEP/2012
     Route: 042
     Dates: start: 20120822, end: 20121008
  5. IRINOTECAN [Suspect]
     Indication: COLON CANCER
     Dosage: LAST DOSE PRIOR TO SAE:05/OCT/2012
     Route: 042
     Dates: start: 20120822, end: 20121008
  6. LEUCOVORIN [Suspect]
     Indication: COLON CANCER
     Dosage: LAST DOSE PRIOR TO SAE:08/SEP/2012
     Route: 042
     Dates: start: 20120822, end: 20121008
  7. TORSEMIDE [Concomitant]
     Route: 048
     Dates: start: 20120822
  8. EMEND [Concomitant]
     Route: 042
     Dates: start: 20120822, end: 20120905

REACTIONS (3)
  - Blood potassium decreased [Fatal]
  - Infection [Fatal]
  - Atypical pneumonia [Fatal]
